FAERS Safety Report 6518574-3 (Version None)
Quarter: 2009Q4

REPORT INFORMATION
  Report Type: 
  Country: None (occurrence: None)
  Receive Date: 20091227
  Receipt Date: 20091216
  Transmission Date: 20100525
  Serious: Yes (Hospitalization)
  Sender: FDA-Public Use
  Company Number: CA-JNJFOC-20091206145

PATIENT
  Age: 50 Year
  Sex: Male

DRUGS (3)
  1. EXTRA STRENGTH TYLENOL SINUS PAIN AND CONGESTION NIGHTTIME [Suspect]
     Indication: SINUS CONGESTION
     Dosage: 8 AM ONCE IN THE MORNINF AFTER TAKING A DOSE THE NIGHT BEFORE
  2. EXTRA STRENGTH TYLENOL SINUS PAIN AND CONGESTION NIGHTTIME [Suspect]
     Dosage: FOR ONE YEAR
  3. FLONASE [Concomitant]

REACTIONS (4)
  - DEEP VEIN THROMBOSIS [None]
  - HAEMORRHAGE INTRACRANIAL [None]
  - INCORRECT DRUG ADMINISTRATION DURATION [None]
  - PULMONARY EMBOLISM [None]
